FAERS Safety Report 8183588-7 (Version None)
Quarter: 2012Q1

REPORT INFORMATION
  Report Type: 
  Country: None (occurrence: None)
  Receive Date: 20120201
  Receipt Date: 20110512
  Transmission Date: 20120608
  Serious: Yes (Death, Other)
  Sender: FDA-Public Use
  Company Number: 259418USA

PATIENT
  Age: 49 Year
  Sex: Male

DRUGS (6)
  1. GABAPENTIN [Suspect]
     Indication: PAIN
     Dosage: 1 CAP 3XDAY (300 MG),ORAL
     Route: 048
     Dates: start: 20100925, end: 20101005
  2. HYDROXYZINE [Suspect]
     Dosage: 1 TAB 2XDAY AS NEEDED (50 MG,2 IN 1 D),ORAL
     Route: 048
     Dates: start: 20101021
  3. VERAPAMIL [Suspect]
     Indication: HYPERTENSION
     Dosage: 2XDAY (180 MG)
  4. MIRTAZAPINE [Suspect]
     Indication: DEPRESSION
     Dosage: 1 TAB AT BEDTIME (30 MG),ORAL
     Route: 048
     Dates: start: 20091022, end: 20101120
  5. BUSPIRONE HCL [Suspect]
     Indication: ANXIETY
     Dosage: 1 TAB 3XDAY (15 MG),ORAL
     Route: 048
     Dates: start: 20091022, end: 20091120
  6. TRAZODONE HCL [Suspect]
     Indication: ANXIETY
     Dosage: 2 TAB AT HS (50 MG)
     Dates: start: 20100925, end: 20101119

REACTIONS (19)
  - CONDITION AGGRAVATED [None]
  - FEAR OF WEIGHT GAIN [None]
  - DYSPEPSIA [None]
  - HEADACHE [None]
  - DRUG INEFFECTIVE [None]
  - RESTLESSNESS [None]
  - COMPLETED SUICIDE [None]
  - IRRITABLE BOWEL SYNDROME [None]
  - DEPRESSION [None]
  - DIARRHOEA [None]
  - EATING DISORDER [None]
  - DECREASED APPETITE [None]
  - WEIGHT DECREASED [None]
  - NAUSEA [None]
  - CHEST PAIN [None]
  - ABDOMINAL DISCOMFORT [None]
  - INSOMNIA [None]
  - ANXIETY [None]
  - GASTROINTESTINAL DISORDER [None]
